FAERS Safety Report 13528676 (Version 2)
Quarter: 2018Q2

REPORT INFORMATION
  Report Type: Spontaneous
  Country: US (occurrence: US)
  Receive Date: 20170509
  Receipt Date: 20180613
  Transmission Date: 20180711
  Serious: Yes (Disabling, Other)
  Sender: FDA-Public Use
  Company Number: US-BRISTOL-MYERS SQUIBB COMPANY-BMS-2017-038385

PATIENT
  Age: 34 Year
  Sex: Female
  Weight: 70.3 kg

DRUGS (2)
  1. OPDIVO [Suspect]
     Active Substance: NIVOLUMAB
     Indication: METASTATIC MALIGNANT MELANOMA
     Dosage: UNK
     Route: 042
     Dates: end: 2017
  2. YERVOY [Suspect]
     Active Substance: IPILIMUMAB
     Indication: METASTATIC MALIGNANT MELANOMA
     Dosage: UNK
     Route: 042
     Dates: end: 2017

REACTIONS (9)
  - Hyperkeratosis [Unknown]
  - Fibrosis [Unknown]
  - Erythema nodosum [Unknown]
  - Fat necrosis [Unknown]
  - Acanthosis [Unknown]
  - Autoimmune hepatitis [Recovering/Resolving]
  - Skin ulcer [Unknown]
  - Localised infection [Unknown]
  - Enterococcal infection [Unknown]
